FAERS Safety Report 16224692 (Version 1)
Quarter: 2019Q2

REPORT INFORMATION
  Report Type: Spontaneous
  Country: US (occurrence: US)
  Receive Date: 20190422
  Receipt Date: 20190422
  Transmission Date: 20190711
  Serious: No
  Sender: FDA-Public Use
  Company Number: US-FOUNDATIONCONSUMERHC-2018-US-020008

PATIENT
  Age: 51 Year
  Sex: Female
  Weight: 84.37 kg

DRUGS (2)
  1. TAKE ACTION [Suspect]
     Active Substance: LEVONORGESTREL
     Indication: POST COITAL CONTRACEPTION
     Dosage: 1.5 MG X 1 DOSE
     Route: 048
     Dates: start: 20181121, end: 20181121
  2. IRON [Concomitant]
     Active Substance: IRON

REACTIONS (3)
  - Vaginal discharge [Recovered/Resolved]
  - Vaginal haemorrhage [Not Recovered/Not Resolved]
  - Micturition disorder [Not Recovered/Not Resolved]

NARRATIVE: CASE EVENT DATE: 20181122
